FAERS Safety Report 19916596 (Version 1)
Quarter: 2021Q4

REPORT INFORMATION
  Report Type: Report from Study
  Country: FR (occurrence: FR)
  Receive Date: 20211005
  Receipt Date: 20211005
  Transmission Date: 20220303
  Serious: Yes (Hospitalization)
  Sender: FDA-Public Use
  Company Number: FR-MERCK HEALTHCARE KGAA-9268377

PATIENT
  Age: 25 Year
  Sex: Female

DRUGS (12)
  1. CHORIOGONADOTROPIN ALFA [Suspect]
     Active Substance: CHORIOGONADOTROPIN ALFA
     Indication: Ovulation induction
  2. GONAL-F [Suspect]
     Active Substance: FOLLITROPIN
     Indication: Controlled ovarian stimulation
     Route: 058
  3. PROGESTERONE [Suspect]
     Active Substance: PROGESTERONE
     Indication: In vitro fertilisation
  4. PHLOROGLUCINOL [Concomitant]
     Active Substance: PHLOROGLUCINOL
     Indication: Stress management
  5. ESTRADIOL [Concomitant]
     Active Substance: ESTRADIOL
     Indication: In vitro fertilisation
  6. PREDNISONE [Concomitant]
     Active Substance: PREDNISONE
     Indication: In vitro fertilisation
  7. .ALPHA.-TOCOPHEROL ACETATE, D- [Concomitant]
     Active Substance: .ALPHA.-TOCOPHEROL ACETATE, D-
     Indication: Product used for unknown indication
  8. CHOLECALCIFEROL [Concomitant]
     Active Substance: CHOLECALCIFEROL
     Indication: Product used for unknown indication
  9. GANIRELIX ACETATE [Concomitant]
     Active Substance: GANIRELIX ACETATE
     Indication: In vitro fertilisation
  10. TRIPTORELIN [Concomitant]
     Active Substance: TRIPTORELIN
     Indication: Ovulation induction
  11. ESTROGENS [Concomitant]
     Active Substance: ESTROGENS
     Indication: Product used for unknown indication
  12. PROGESTERONE [Concomitant]
     Active Substance: PROGESTERONE
     Indication: Product used for unknown indication

REACTIONS (7)
  - Circulatory collapse [Unknown]
  - Ascites [Unknown]
  - Dyspnoea [Unknown]
  - Malaise [Unknown]
  - Insomnia [Unknown]
  - Ovarian hyperstimulation syndrome [Unknown]
  - Abdominal pain [Unknown]
